FAERS Safety Report 8273276-0 (Version None)
Quarter: 2012Q2

REPORT INFORMATION
  Report Type: 
  Country: None (occurrence: None)
  Receive Date: 20120411
  Receipt Date: 20120409
  Transmission Date: 20120825
  Serious: Yes (Hospitalization, Other)
  Sender: FDA-Public Use
  Company Number: US-PFIZER INC-2012070831

PATIENT

DRUGS (1)
  1. CHANTIX [Suspect]
     Dosage: UNK

REACTIONS (5)
  - CATARACT [None]
  - FUNCTIONAL GASTROINTESTINAL DISORDER [None]
  - GALLBLADDER DISORDER [None]
  - CARDIAC DISORDER [None]
  - ROTATOR CUFF SYNDROME [None]
